FAERS Safety Report 13098170 (Version 1)
Quarter: 2017Q1

REPORT INFORMATION
  Report Type: Not Available
  Country: US (occurrence: US)
  Receive Date: 20170109
  Receipt Date: 20170109
  Transmission Date: 20170428
  Serious: No
  Sender: FDA-Public Use
  Company Number: US-ANIPHARMA-2016-US-007496

PATIENT
  Sex: Female

DRUGS (1)
  1. METOCLOPRAMIDE (NON-SPECIFIC) [Suspect]
     Active Substance: METOCLOPRAMIDE
     Dosage: 15-40 MG DAILY
     Route: 048
     Dates: start: 20080922

REACTIONS (6)
  - Headache [Not Recovered/Not Resolved]
  - Panic attack [Not Recovered/Not Resolved]
  - Anxiety [Not Recovered/Not Resolved]
  - Vision blurred [Not Recovered/Not Resolved]
  - Drug withdrawal syndrome [Not Recovered/Not Resolved]
  - Dizziness [Not Recovered/Not Resolved]

NARRATIVE: CASE EVENT DATE: 201606
